FAERS Safety Report 9749962 (Version 1)
Quarter: 2013Q4

REPORT INFORMATION
  Report Type: Spontaneous
  Country: BR (occurrence: BR)
  Receive Date: 20131212
  Receipt Date: 20131212
  Transmission Date: 20140711
  Serious: Yes (Hospitalization, Other)
  Sender: FDA-Public Use
  Company Number: PHHY2013BR143035

PATIENT
  Age: 82 Year
  Sex: Female

DRUGS (3)
  1. DIOVAN AMLO FIX [Suspect]
     Indication: HYPERTENSION
     Dosage: UNK UKN, UNK
     Route: 048
  2. DIOVAN AMLO FIX [Suspect]
     Dosage: 1 DF (160 MG VALS/ 5 MG AMLO), QD
     Route: 048
  3. NATRILIX [Suspect]
     Dosage: UNK UKN, UNK

REACTIONS (10)
  - Syncope [Unknown]
  - Arrhythmia [Unknown]
  - Concomitant disease aggravated [Unknown]
  - Increased upper airway secretion [Unknown]
  - Allergy to chemicals [Unknown]
  - Malaise [Unknown]
  - Dyspnoea [Unknown]
  - Dizziness [Unknown]
  - Nasopharyngitis [Unknown]
  - Hypertension [Unknown]
